FAERS Safety Report 7127612-9 (Version None)
Quarter: 2010Q4

REPORT INFORMATION
  Report Type: 
  Country: None (occurrence: None)
  Receive Date: 20101130
  Receipt Date: 20101029
  Transmission Date: 20110411
  Serious: Yes (Other)
  Sender: FDA-Public Use
  Company Number: GB-AMGEN-GBRCT2010002111

PATIENT

DRUGS (5)
  1. ENBREL [Suspect]
     Indication: RHEUMATOID ARTHRITIS
     Dosage: 25 MG, 2 TIMES/WK
     Dates: start: 20041008
  2. CO-CODAMOL [Concomitant]
     Dosage: UNKNOWN
  3. ARTHROTEC [Concomitant]
     Dosage: UNKNOWN
  4. SULPHASALAZINE [Concomitant]
     Dosage: UNKNOWN
  5. LEFLUNOMIDE [Concomitant]
     Dosage: UNKNOWN

REACTIONS (1)
  - OESOPHAGEAL CARCINOMA [None]
